FAERS Safety Report 7860391-6 (Version None)
Quarter: 2011Q4

REPORT INFORMATION
  Report Type: 
  Country: None (occurrence: None)
  Receive Date: 20111027
  Receipt Date: 20111017
  Transmission Date: 20120403
  Serious: Yes (Other)
  Sender: FDA-Public Use
  Company Number: PHFR2010GB05937

PATIENT
  Sex: Male

DRUGS (3)
  1. CLOZAPINE [Suspect]
     Indication: SCHIZOPHRENIA
     Route: 048
     Dates: start: 20080801
  2. CLOZARIL [Suspect]
     Indication: SCHIZOPHRENIA
     Route: 048
     Dates: start: 19981201, end: 19990201
  3. CLOZARIL [Suspect]
     Route: 048
     Dates: start: 20020201, end: 20080801

REACTIONS (9)
  - CIRCULATORY COLLAPSE [None]
  - ARRHYTHMIA [None]
  - MUSCLE TWITCHING [None]
  - AUTOIMMUNE DISORDER [None]
  - BLOOD TEST ABNORMAL [None]
  - URINE ANALYSIS ABNORMAL [None]
  - DYSKINESIA [None]
  - BRAIN INJURY [None]
  - TACHYCARDIA [None]
